FAERS Safety Report 17975309 (Version 1)
Quarter: 2020Q3

REPORT INFORMATION
  Report Type: Report from Study
  Country: CA (occurrence: CA)
  Receive Date: 20200702
  Receipt Date: 20200702
  Transmission Date: 20201103
  Serious: Yes (Hospitalization)
  Sender: FDA-Public Use
  Company Number: CA-PFIZER INC-2020253780

PATIENT
  Age: 55 Year
  Sex: Female

DRUGS (5)
  1. TOPIRAMATE. [Suspect]
     Active Substance: TOPIRAMATE
     Indication: MIGRAINE
     Dosage: 50 MG
     Route: 065
  2. CANDESARTAN. [Suspect]
     Active Substance: CANDESARTAN
     Indication: MIGRAINE
     Dosage: 8 MG, 1X/DAY
     Route: 065
  3. SUMATRIPTAN. [Concomitant]
     Active Substance: SUMATRIPTAN
     Indication: MIGRAINE
     Dosage: 6 MG
     Route: 058
  4. PROPANOLOL HCL [Suspect]
     Active Substance: PROPRANOLOL HYDROCHLORIDE
     Indication: MIGRAINE
     Dosage: UNK
     Route: 065
  5. ELAVIL [Suspect]
     Active Substance: AMITRIPTYLINE HYDROCHLORIDE
     Dosage: 100 MG
     Route: 048

REACTIONS (13)
  - Flushing [Unknown]
  - Paraesthesia oral [Unknown]
  - Dry mouth [Unknown]
  - Headache [Unknown]
  - Drug ineffective [Unknown]
  - Migraine with aura [Unknown]
  - Dermatitis contact [Unknown]
  - Poor quality sleep [Unknown]
  - Perfume sensitivity [Unknown]
  - Dizziness [Unknown]
  - Hypoaesthesia [Unknown]
  - Drug intolerance [Unknown]
  - Neurological symptom [Unknown]
